FAERS Safety Report 7374599-X (Version None)
Quarter: 2011Q1

REPORT INFORMATION
  Report Type: 
  Country: None (occurrence: None)
  Receive Date: 20110325
  Receipt Date: 20100601
  Transmission Date: 20110831
  Serious: No
  Sender: FDA-Public Use
  Company Number: US-MYLANLABS-2010S1006944

PATIENT
  Age: 53 Year
  Sex: Female
  Weight: 68.04 kg

DRUGS (5)
  1. FENTANYL-100 [Suspect]
     Indication: BACK PAIN
     Dosage: Q 48 TO 72HRS.
     Route: 062
     Dates: start: 20100415, end: 20100416
  2. FENTANYL-100 [Suspect]
     Indication: PAIN
     Dosage: Q 48 TO 72HRS.
     Route: 062
     Dates: start: 20100415, end: 20100416
  3. OXYCODONE HCL AND ACETAMINOPHEN [Concomitant]
     Dates: start: 20080326
  4. VALIUM [Concomitant]
     Dates: start: 20080326
  5. LORCET-HD [Concomitant]
     Dosage: 10MG/650MG
     Dates: start: 20080326

REACTIONS (6)
  - DRUG INEFFECTIVE [None]
  - SOMNOLENCE [None]
  - MALAISE [None]
  - BACK PAIN [None]
  - VOMITING [None]
  - NAUSEA [None]
